FAERS Safety Report 5283151-1 (Version None)
Quarter: 2007Q1

REPORT INFORMATION
  Report Type: 
  Country: None (occurrence: None)
  Receive Date: 20070329
  Receipt Date: 20070329
  Transmission Date: 20070707
  Serious: Yes (Hospitalization)
  Sender: FDA-Public Use
  Company Number: None

PATIENT
  Age: 79 Year
  Sex: Female
  Weight: 85.8 kg

DRUGS (8)
  1. VENLAFAXIINE HCL [Suspect]
     Indication: DEPRESSION
     Dosage: 225MG QHS PO
     Route: 048
     Dates: start: 20070222, end: 20070223
  2. ASPIRIN [Concomitant]
  3. METOPROLOL SUCCINATE [Concomitant]
  4. QUETIAPINE FUMARATE [Concomitant]
  5. MULTI-VIT [Concomitant]
  6. LORAZEPAM [Concomitant]
  7. MAALOX FAST BLOCKER [Concomitant]
  8. MILK OF MAG [Concomitant]

REACTIONS (1)
  - ATRIAL FIBRILLATION [None]
